FAERS Safety Report 18862905 (Version 1)
Quarter: 2021Q1

REPORT INFORMATION
  Report Type: Other
  Country: BR (occurrence: BR)
  Receive Date: 20210208
  Receipt Date: 20210208
  Transmission Date: 20210420
  Serious: Yes (Death, Other)
  Sender: FDA-Public Use
  Company Number: BR-ROCHE-2760780

PATIENT
  Age: 67 Year
  Sex: Male

DRUGS (2)
  1. HEPARIN SODIUM. [Concomitant]
     Active Substance: HEPARIN SODIUM
     Indication: THROMBOSIS PROPHYLAXIS
     Dosage: PROPHYLACTIC DOSE
     Route: 058
  2. ACTILYSE [Suspect]
     Active Substance: ALTEPLASE
     Indication: CEREBROVASCULAR ACCIDENT
     Route: 065

REACTIONS (18)
  - Cardiac failure congestive [Fatal]
  - Gallbladder rupture [Recovered/Resolved]
  - Intra-abdominal haemorrhage [Recovered/Resolved]
  - Pyrexia [Recovered/Resolved]
  - Hypotension [Recovered/Resolved]
  - Cervical vertebral fracture [Recovered/Resolved]
  - Vomiting [Unknown]
  - Haemorrhagic cholecystitis [Recovered/Resolved]
  - Haemobilia [Recovered/Resolved]
  - Fall [Unknown]
  - Chest pain [Not Recovered/Not Resolved]
  - Nausea [Not Recovered/Not Resolved]
  - Pain [Not Recovered/Not Resolved]
  - Tachycardia [Recovered/Resolved]
  - Post procedural bile leak [Recovered/Resolved]
  - Melaena [Unknown]
  - Intra-abdominal fluid collection [Recovered/Resolved]
  - Chills [Recovered/Resolved]
